FAERS Safety Report 16624708 (Version 1)
Quarter: 2019Q3

REPORT INFORMATION
  Report Type: Spontaneous
  Country: JP (occurrence: JP)
  Receive Date: 20190724
  Receipt Date: 20190724
  Transmission Date: 20191004
  Serious: Yes (Other)
  Sender: FDA-Public Use
  Company Number: JP-PFIZER INC-2019307752

PATIENT
  Age: 6 Decade
  Sex: Male

DRUGS (2)
  1. BETANIS [Suspect]
     Active Substance: MIRABEGRON
     Dosage: UNK
  2. TOVIAZ [Suspect]
     Active Substance: FESOTERODINE FUMARATE
     Dosage: UNK

REACTIONS (1)
  - Erythema multiforme [Unknown]
